FAERS Safety Report 8247778-7 (Version None)
Quarter: 2012Q1

REPORT INFORMATION
  Report Type: 
  Country: None (occurrence: None)
  Receive Date: 20120330
  Receipt Date: 20120320
  Transmission Date: 20120608
  Serious: Yes (Hospitalization)
  Sender: FDA-Public Use
  Company Number: US-MPIJNJ-2010-06186

PATIENT
  Sex: Female
  Weight: 120 kg

DRUGS (19)
  1. VALTREX [Concomitant]
     Dosage: 500 MG, QD
     Route: 048
  2. LASIX [Concomitant]
     Dosage: 20 MG, QD
  3. NEURONTIN [Concomitant]
     Indication: PAIN
     Dosage: 300 MG, UNK
  4. POTASSIUM [Concomitant]
     Dosage: 10 MEQ, BID
  5. VELCADE [Suspect]
     Indication: MULTIPLE MYELOMA
     Dosage: 2.86 MG, CYCLIC
     Route: 042
     Dates: start: 20100929, end: 20101002
  6. INSULIN [Concomitant]
  7. ZOCOR [Concomitant]
     Dosage: 40 UNK, UNK
     Route: 048
  8. LISINOPRIL [Concomitant]
     Dosage: 5 MG, QD
  9. LANTUS [Concomitant]
  10. MELPHALAN HYDROCHLORIDE [Suspect]
     Indication: MULTIPLE MYELOMA
     Dosage: 20 MG, UNK
     Route: 048
     Dates: start: 20100929, end: 20101002
  11. ALDACTONE [Concomitant]
     Dosage: 25 MG, QD
  12. DIGOXIN [Concomitant]
     Dosage: 0.125 UNK, UNK
     Route: 048
  13. ZOCOR [Concomitant]
     Dosage: 20 MG, UNK
     Route: 048
  14. COREG [Concomitant]
     Dosage: 25 MG, BID
  15. ZOFRAN [Concomitant]
     Dosage: 8 MG, Q8HR
  16. PREDNISONE TAB [Suspect]
     Indication: MULTIPLE MYELOMA
     Dosage: 130 MG, UNK
     Route: 048
     Dates: start: 20100929, end: 20101002
  17. ZOLOFT [Concomitant]
     Dosage: 50 MG, QD
     Route: 048
  18. DILAUDID [Concomitant]
     Dosage: 2 MG, Q4HR
  19. ASPIRIN [Concomitant]
     Dosage: 325 MG, QD
     Route: 048

REACTIONS (5)
  - HYPERGLYCAEMIA [None]
  - ANAEMIA [None]
  - RENAL IMPAIRMENT [None]
  - HYPOTENSION [None]
  - HYPONATRAEMIA [None]
